FAERS Safety Report 24327879 (Version 1)
Quarter: 2024Q3

REPORT INFORMATION
  Report Type: Spontaneous
  Country: US (occurrence: US)
  Receive Date: 20240917
  Receipt Date: 20240917
  Transmission Date: 20241017
  Serious: No
  Sender: MYLAN
  Company Number: US-MYLANLABS-2024M1081578

PATIENT
  Sex: Female
  Weight: 59.42 kg

DRUGS (1)
  1. WIXELA INHUB [Suspect]
     Active Substance: FLUTICASONE PROPIONATE\SALMETEROL XINAFOATE
     Indication: Pneumonia
     Dosage: 250/50 MIROGRAM, BID (TWICE A DAY)
     Route: 055

REACTIONS (4)
  - Foreign body in mouth [Unknown]
  - Cough [Unknown]
  - Off label use [Unknown]
  - Product contamination physical [Unknown]
